FAERS Safety Report 13192497 (Version 1)
Quarter: 2017Q1

REPORT INFORMATION
  Report Type: Spontaneous
  Country: US (occurrence: US)
  Receive Date: 20170207
  Receipt Date: 20170207
  Transmission Date: 20170428
  Serious: No
  Sender: FDA-Public Use
  Company Number: None

PATIENT
  Age: 34 Year
  Sex: Male
  Weight: 81.9 kg

DRUGS (1)
  1. ATORVASTATIN DR REDDY^S [Suspect]
     Active Substance: ATORVASTATIN CALCIUM
     Indication: BLOOD CHOLESTEROL INCREASED
     Dosage: ?          QUANTITY:1 TABLET(S);?
     Route: 048
     Dates: start: 20170125, end: 20170202

REACTIONS (3)
  - Sensory loss [None]
  - Ejaculation delayed [None]
  - Loss of libido [None]

NARRATIVE: CASE EVENT DATE: 20170202
